FAERS Safety Report 6915792-7 (Version None)
Quarter: 2010Q3

REPORT INFORMATION
  Report Type: 
  Country: None (occurrence: None)
  Receive Date: 20100810
  Receipt Date: 20100312
  Transmission Date: 20110219
  Serious: No
  Sender: FDA-Public Use
  Company Number: A0849700A

PATIENT
  Sex: Female

DRUGS (8)
  1. PAXIL [Suspect]
     Indication: DEPRESSION
     Dosage: 5MG PER DAY
     Route: 048
     Dates: start: 20100227
  2. PAROXETINE HCL [Suspect]
     Route: 048
  3. ABILIFY [Concomitant]
  4. THYROID MEDICATION [Concomitant]
  5. SEROQUEL [Concomitant]
  6. RITALIN [Concomitant]
  7. KLONOPIN [Concomitant]
  8. MYLAN [Concomitant]

REACTIONS (3)
  - ANXIETY [None]
  - CRYING [None]
  - DRUG INEFFECTIVE [None]
